FAERS Safety Report 25150532 (Version 1)
Quarter: 2025Q2

REPORT INFORMATION
  Report Type: Spontaneous
  Country: US (occurrence: US)
  Receive Date: 20250402
  Receipt Date: 20250402
  Transmission Date: 20250716
  Serious: No
  Sender: ORPHAZYME
  Company Number: US-ZEVRA DENMARK A/S-ORP-000525

PATIENT
  Age: 5 Year
  Sex: Female

DRUGS (2)
  1. MIPLYFFA [Suspect]
     Active Substance: ARIMOCLOMOL CITRATE
     Indication: Niemann-Pick disease
     Dosage: 62 MG, TID
     Route: 048
     Dates: start: 20241231, end: 20250108
  2. MIPLYFFA [Suspect]
     Active Substance: ARIMOCLOMOL CITRATE
     Dosage: 62 MILLIGRAM, BID
     Dates: start: 20250115

REACTIONS (1)
  - Vomiting [Recovered/Resolved]

NARRATIVE: CASE EVENT DATE: 20241231
